FAERS Safety Report 17970321 (Version 1)
Quarter: 2020Q3

REPORT INFORMATION
  Report Type: Spontaneous
  Country: FR (occurrence: FR)
  Receive Date: 20200701
  Receipt Date: 20200701
  Transmission Date: 20201103
  Serious: Yes (Hospitalization)
  Sender: FDA-Public Use
  Company Number: FR-MYLANLABS-2020M1059504

PATIENT
  Age: 61 Year
  Sex: Female
  Weight: 61 kg

DRUGS (17)
  1. EMEND [Suspect]
     Active Substance: APREPITANT
     Indication: CHEMOTHERAPY SIDE EFFECT PROPHYLAXIS
     Dosage: 125 MILLIGRAM, QD
     Route: 048
     Dates: start: 20200527, end: 20200530
  2. TIORFAN [Concomitant]
     Active Substance: RACECADOTRIL
     Dosage: UNK
  3. DOMPERIDONE [Concomitant]
     Active Substance: DOMPERIDONE
     Dosage: UNK
  4. ONDANSETRON [Suspect]
     Active Substance: ONDANSETRON
     Indication: CHEMOTHERAPY SIDE EFFECT PROPHYLAXIS
     Dosage: 8 MILLIGRAM, QD
     Route: 042
     Dates: start: 20200527, end: 20200528
  5. ASPEGIC                            /00002701/ [Concomitant]
     Active Substance: ASPIRIN
     Dosage: UNK
  6. EMLA [Concomitant]
     Active Substance: LIDOCAINE\PRILOCAINE
     Dosage: UNK (5 POUR CENT, PANSEMENT ADH?SIF CUTAN?  )
  7. CYCLOPHOSPHAMIDE. [Suspect]
     Active Substance: CYCLOPHOSPHAMIDE
     Indication: BREAST CANCER
     Dosage: 160 MILLIGRAM, CYCLE
     Route: 042
     Dates: start: 20200527, end: 20200527
  8. FORLAX [Suspect]
     Active Substance: POLYETHYLENE GLYCOL 4000
     Indication: CHEMOTHERAPY SIDE EFFECT PROPHYLAXIS
     Dosage: SI BESOIN
     Route: 048
  9. PROPRANOLOL [Concomitant]
     Active Substance: PROPRANOLOL HYDROCHLORIDE
     Dosage: UNK
  10. SOLU?MEDROL [Suspect]
     Active Substance: METHYLPREDNISOLONE SODIUM SUCCINATE
     Indication: CHEMOTHERAPY SIDE EFFECT PROPHYLAXIS
     Dosage: 80 MILLIGRAM, CYCLE
     Route: 042
     Dates: start: 20200527, end: 20200527
  11. DEXERYL                            /01579901/ [Concomitant]
     Active Substance: GLYCERIN\MINERAL OIL\PETROLATUM
     Dosage: UNK
  12. SMECTA [Concomitant]
     Active Substance: MONTMORILLONITE
     Dosage: UNK
  13. PRIMPERAN [Concomitant]
     Active Substance: METOCLOPRAMIDE HYDROCHLORIDE
     Dosage: UNK
  14. FLUOROURACILE [Suspect]
     Active Substance: FLUOROURACIL
     Indication: BREAST CANCER
     Dosage: 830 MILLIGRAM, CYCLE
     Route: 042
     Dates: start: 20200527, end: 20200527
  15. LANSOYL [Concomitant]
     Active Substance: MINERAL OIL
     Dosage: UNK
  16. EPIRUBICIN [Suspect]
     Active Substance: EPIRUBICIN
     Indication: BREAST CANCER
     Dosage: 830 MILLIGRAM, CYCLE
     Route: 042
     Dates: start: 20200527, end: 20200527
  17. ZESTORETIC [Suspect]
     Active Substance: HYDROCHLOROTHIAZIDE\LISINOPRIL
     Indication: HYPERTENSION
     Dosage: 1 DOSAGE FORM, QD
     Route: 048
     Dates: end: 20200609

REACTIONS (5)
  - Hyponatraemia [Recovered/Resolved]
  - Loss of consciousness [Recovered/Resolved]
  - Fall [Recovered/Resolved]
  - Seizure [Recovered/Resolved]
  - Confusional state [Recovered/Resolved]

NARRATIVE: CASE EVENT DATE: 20200529
